FAERS Safety Report 8999038 (Version 3)
Quarter: 2013Q2

REPORT INFORMATION
  Report Type: Spontaneous
  Country: US (occurrence: US)
  Receive Date: 20130103
  Receipt Date: 20130415
  Transmission Date: 20140414
  Serious: Yes (Other)
  Sender: FDA-Public Use
  Company Number: US-BAYER-2012-136316

PATIENT
  Age: 31 Year
  Sex: Female

DRUGS (1)
  1. MIRENA [Suspect]
     Dosage: 20 MCG/24HR, CONT
     Route: 015
     Dates: start: 20120626, end: 20121218

REACTIONS (13)
  - Abnormal weight gain [None]
  - Genital haemorrhage [None]
  - Abdominal distension [Recovered/Resolved]
  - Fatigue [Recovered/Resolved]
  - Abdominal pain upper [Recovered/Resolved]
  - Musculoskeletal stiffness [Recovered/Resolved]
  - Arthralgia [None]
  - Abdominal pain lower [None]
  - Depression [None]
  - Neuralgia [Recovered/Resolved]
  - Pelvic pain [Recovered/Resolved]
  - Dysuria [None]
  - Uterine rupture [None]
